FAERS Safety Report 5414524-1 (Version None)
Quarter: 2007Q3

REPORT INFORMATION
  Report Type: 
  Country: None (occurrence: None)
  Receive Date: 20070814
  Receipt Date: 20070810
  Transmission Date: 20080115
  Serious: Yes (Life-Threatening, Other)
  Sender: FDA-Public Use
  Company Number: GB-MERCK-0708GBR00046

PATIENT
  Age: 79 Year
  Sex: Male
  Weight: 72 kg

DRUGS (6)
  1. ZOCOR [Suspect]
     Indication: BLOOD CHOLESTEROL INCREASED
     Route: 048
     Dates: start: 20060811, end: 20070114
  2. ZOCOR [Suspect]
     Indication: HYPERTENSION
     Route: 048
     Dates: start: 20060811, end: 20070114
  3. BECLOMETHASONE DIPROPIONATE [Concomitant]
     Indication: ASTHMA
     Dates: start: 20021024
  4. NIFEDIPINE [Concomitant]
     Indication: HYPERTENSION
     Route: 048
     Dates: start: 20040914
  5. ALBUTEROL [Concomitant]
     Indication: ASTHMA
     Dates: start: 20021024
  6. PRINZIDE [Concomitant]
     Indication: HYPERTENSION
     Route: 048
     Dates: start: 20040914

REACTIONS (2)
  - ASTHMA [None]
  - MUSCLE SPASMS [None]
